FAERS Safety Report 4282680-7 (Version None)
Quarter: 2004Q1

REPORT INFORMATION
  Report Type: 
  Country: None (occurrence: None)
  Receive Date: 20040130
  Receipt Date: 20030213
  Transmission Date: 20041129
  Serious: No
  Sender: FDA-Public Use
  Company Number: US-BRISTOL-MYERS SQUIBB COMPANY-12186359

PATIENT
  Age: 15 Year
  Sex: Female
  Weight: 91 kg

DRUGS (4)
  1. SERZONE [Suspect]
     Indication: DEPRESSION
     Dosage: ^STARTER PACK^ (SAMPLE PACKET)
     Route: 048
     Dates: start: 20030211, end: 20030211
  2. RHINOCORT [Concomitant]
  3. AZMACORT [Concomitant]
  4. DEPO-PROVERA [Concomitant]
     Dosage: INJECTION
     Route: 030

REACTIONS (1)
  - HALLUCINATION [None]
